FAERS Safety Report 8761661 (Version 1)
Quarter: 2012Q4

REPORT INFORMATION
  Report Type: Spontaneous
  Country: US (occurrence: None)
  Receive Date: 20120830
  Receipt Date: 20120830
  Transmission Date: 20130627
  Serious: Yes (Hospitalization, Other)
  Sender: FDA-Public Use
  Company Number: None

PATIENT
  Age: 18 Year
  Sex: Female
  Weight: 63 kg

DRUGS (7)
  1. MINOCYCLINE 100 MG [Suspect]
     Indication: SKIN INFECTION
     Route: 048
     Dates: start: 20120709, end: 20120821
  2. LISINOPRIL [Concomitant]
  3. MAGNESIUM CHLORIDE [Concomitant]
  4. LANSOPRAZOLE [Concomitant]
  5. MYCOPHENOLATE MOFETIL [Concomitant]
  6. TACROLIMUS [Concomitant]
  7. PREDNISONE [Concomitant]

REACTIONS (1)
  - Intracranial pressure increased [None]
